FAERS Safety Report 8966757 (Version 1)
Quarter: 2012Q4

REPORT INFORMATION
  Report Type: 
  Country: AU (occurrence: AU)
  Receive Date: 20121217
  Receipt Date: 20121217
  Transmission Date: 20130627
  Serious: Yes (Hospitalization)
  Sender: FDA-Public Use
  Company Number: AU-SANOFI-AVENTIS-2012SA090914

PATIENT
  Age: 81 Year
  Sex: Female
  Weight: 67.6 kg

DRUGS (10)
  1. LASIX [Suspect]
     Indication: CONGESTIVE HEART FAILURE
     Route: 065
  2. LASIX [Suspect]
     Indication: CONGESTIVE HEART FAILURE
     Route: 065
  3. LEXAPRO [Suspect]
     Indication: DEPRESSION
     Route: 048
     Dates: start: 20120822, end: 20120827
  4. FISH OIL [Concomitant]
  5. COUMADIN [Concomitant]
     Indication: ARRHYTHMIA
  6. CHONDROITIN W/GLUCOSAMINE [Concomitant]
  7. LANOXIN [Concomitant]
     Indication: ARRHYTHMIA
  8. LOSEC [Concomitant]
     Indication: ESOPHAGEAL DISEASE NOS
  9. PANADOL [Concomitant]
  10. FOLIC ACID/VITAMIN B12 NOS [Concomitant]
     Indication: UNSPECIFIED VITAMIN DEFICIENCY

REACTIONS (5)
  - Malaise [Not Recovered/Not Resolved]
  - Abdominal pain [Not Recovered/Not Resolved]
  - Urinary retention [Not Recovered/Not Resolved]
  - Urine output decreased [Not Recovered/Not Resolved]
  - Hyponatraemia [Not Recovered/Not Resolved]
